FAERS Safety Report 5708588-5 (Version None)
Quarter: 2008Q2

REPORT INFORMATION
  Report Type: 
  Country: None (occurrence: None)
  Receive Date: 20080414
  Receipt Date: 20080414
  Transmission Date: 20081010
  Serious: Yes (Hospitalization)
  Sender: FDA-Public Use
  Company Number: None

PATIENT
  Age: 68 Year
  Sex: Male

DRUGS (9)
  1. IRESSA [Suspect]
     Indication: SQUAMOUS CELL CARCINOMA
     Dosage: 500 MG PO QD
     Route: 048
     Dates: start: 20071121, end: 20080402
  2. METOPROLOL TARTRATE [Concomitant]
  3. SYNTHROID [Concomitant]
  4. FLOMAX [Concomitant]
  5. LUMIGAN EYE DROPS [Concomitant]
  6. VITAMIN CAP [Concomitant]
  7. ASCORBIC ACID [Concomitant]
  8. MIRALEX [Concomitant]
  9. COSOPT EYE DROPS [Concomitant]

REACTIONS (4)
  - CAROTID ARTERY OCCLUSION [None]
  - MOUTH HAEMORRHAGE [None]
  - RASH [None]
  - SKIN TOXICITY [None]
